FAERS Safety Report 18401297 (Version 2)
Quarter: 2020Q4

REPORT INFORMATION
  Report Type: Spontaneous
  Country: JP (occurrence: JP)
  Receive Date: 20201019
  Receipt Date: 20201214
  Transmission Date: 20210114
  Serious: Yes (Death, Life-Threatening, Hospitalization, Other)
  Sender: FDA-Public Use
  Company Number: JP-ASTRAZENECA-2020SF34423

PATIENT
  Age: 48 Year
  Sex: Female
  Weight: 52 kg

DRUGS (9)
  1. IMFINZI [Suspect]
     Active Substance: DURVALUMAB
     Indication: NON-SMALL CELL LUNG CANCER
     Route: 041
     Dates: start: 20200116
  2. VANCOMYCIN HYDROCHLORIDE. [Suspect]
     Active Substance: VANCOMYCIN HYDROCHLORIDE
     Indication: INFECTION
     Route: 041
     Dates: start: 20200730, end: 20200804
  3. ALLOID G [Concomitant]
     Active Substance: SODIUM ALGINATE
     Dosage: NUMBER OF SEPARATE DOSAGES UNKNOWN
     Route: 048
     Dates: start: 20200718, end: 20200801
  4. TOARASET [Concomitant]
     Active Substance: ACETAMINOPHEN\TRAMADOL HYDROCHLORIDE
     Dosage: 1.0DF AS REQUIRED
     Route: 048
     Dates: start: 20200719, end: 20200731
  5. IMFINZI [Suspect]
     Active Substance: DURVALUMAB
     Indication: NON-SMALL CELL LUNG CANCER
     Route: 041
     Dates: end: 20200220
  6. PIPERACILLIN SODIUM [Suspect]
     Active Substance: PIPERACILLIN SODIUM
     Dosage: DOSE UNKNOWN
     Route: 065
     Dates: end: 20200801
  7. LANSOPRAZOLE OD [Suspect]
     Active Substance: LANSOPRAZOLE
     Indication: PROPHYLAXIS AGAINST GASTROINTESTINAL ULCER
     Route: 048
     Dates: start: 20200722, end: 20200731
  8. TAZOPIPE [Suspect]
     Active Substance: PIPERACILLIN SODIUM\TAZOBACTAM SODIUM
     Indication: INFECTION
     Route: 042
     Dates: start: 20200730, end: 20200730
  9. ALECENSA [Concomitant]
     Active Substance: ALECTINIB HYDROCHLORIDE
     Indication: NON-SMALL CELL LUNG CANCER
     Route: 048
     Dates: start: 20200715, end: 20200801

REACTIONS (16)
  - Oliguria [Unknown]
  - Metabolic acidosis [Not Recovered/Not Resolved]
  - Infection [Unknown]
  - Pericardial effusion [Fatal]
  - Myocarditis [Fatal]
  - Drug reaction with eosinophilia and systemic symptoms [Unknown]
  - Multi-organ disorder [Recovering/Resolving]
  - Septic shock [Unknown]
  - Pericarditis malignant [Unknown]
  - Pericarditis [Unknown]
  - Drug eruption [Recovering/Resolving]
  - Hypoxia [Unknown]
  - Drug eruption [Unknown]
  - Blood pressure decreased [Unknown]
  - Liver disorder [Unknown]
  - Drug reaction with eosinophilia and systemic symptoms [Fatal]

NARRATIVE: CASE EVENT DATE: 20200116
